FAERS Safety Report 13002541 (Version 2)
Quarter: 2018Q1

REPORT INFORMATION
  Report Type: Spontaneous
  Country: GB (occurrence: GB)
  Receive Date: 20161206
  Receipt Date: 20180102
  Transmission Date: 20180508
  Serious: Yes (Death, Hospitalization)
  Sender: FDA-Public Use
  Company Number: GB-JNJFOC-20161204981

PATIENT
  Sex: Male

DRUGS (5)
  1. MIRTAZAPINE. [Concomitant]
     Active Substance: MIRTAZAPINE
     Indication: DEPRESSION
     Route: 048
     Dates: start: 2016
  2. TRAMADOL HYDROCHLORIDE. [Suspect]
     Active Substance: TRAMADOL HYDROCHLORIDE
     Indication: PRODUCT USED FOR UNKNOWN INDICATION
     Route: 065
  3. LANSOPRAZOLE. [Concomitant]
     Active Substance: LANSOPRAZOLE
     Route: 048
     Dates: start: 2016
  4. PREGABALIN. [Concomitant]
     Active Substance: PREGABALIN
     Route: 048
     Dates: start: 2016, end: 2016
  5. ZAMADOL [Suspect]
     Active Substance: TRAMADOL HYDROCHLORIDE
     Indication: PAIN
     Route: 048
     Dates: start: 2016, end: 2016

REACTIONS (12)
  - Circulatory collapse [Unknown]
  - Somnolence [Unknown]
  - Malaise [Unknown]
  - Myocardial infarction [Fatal]
  - Prescription drug used without a prescription [Unknown]
  - Nervousness [Unknown]
  - Slow speech [Unknown]
  - Loss of consciousness [Not Recovered/Not Resolved]
  - Pallor [Unknown]
  - Toxicity to various agents [Fatal]
  - Diarrhoea [Unknown]
  - Drug abuse [Fatal]

NARRATIVE: CASE EVENT DATE: 2016
